FAERS Safety Report 8956726 (Version 2)
Quarter: 2013Q1

REPORT INFORMATION
  Report Type: Spontaneous
  Country: US (occurrence: DE)
  Receive Date: 20121211
  Receipt Date: 20130122
  Transmission Date: 20140127
  Serious: Yes (Hospitalization, Other)
  Sender: FDA-Public Use
  Company Number: DE-009507513-1005DEU00051

PATIENT
  Age: 54 Year
  Sex: Male
  Weight: 83 kg

DRUGS (11)
  1. JANUMET [Suspect]
     Indication: TYPE 2 DIABETES MELLITUS
     Dosage: 1 DF, BID
     Route: 048
     Dates: start: 20090101, end: 20100423
  2. RASILEZ [Suspect]
     Indication: HYPERTENSION
     Dosage: 150 MG, QD
     Route: 048
     Dates: start: 20070701, end: 20100423
  3. ALLOPURINOL [Suspect]
     Indication: HYPERURICAEMIA
     Dosage: 150 MG, QD
     Route: 048
     Dates: end: 20100423
  4. OMACOR [Suspect]
     Indication: HYPERTRIGLYCERIDAEMIA
     Dosage: 1000 MG, QID
     Route: 048
     Dates: start: 20080701, end: 20100423
  5. ACTOS [Suspect]
     Indication: TYPE 2 DIABETES MELLITUS
     Dosage: 15 MG, QD
     Route: 048
     Dates: start: 20090713, end: 20100423
  6. METFORMIN [Suspect]
     Indication: TYPE 2 DIABETES MELLITUS
     Dosage: 500 MG, QD
     Route: 048
     Dates: start: 20080701, end: 20100422
  7. CRESTOR [Suspect]
     Indication: HYPERLIPIDAEMIA
     Dosage: 10 MG, QD
     Route: 048
     Dates: start: 20091008, end: 20100423
  8. METOHEXAL SUCC [Concomitant]
     Indication: HYPERTENSION
     Dosage: 47.5 MG, QD
     Dates: start: 200510
  9. RAMIPRIL [Concomitant]
     Indication: HYPERTENSION
     Dosage: 5 MG, QD
     Route: 048
     Dates: start: 20051001
  10. SIMVAHEXAL [Concomitant]
     Indication: HYPERLIPIDAEMIA
     Dosage: 40 MG, QD
     Route: 048
     Dates: start: 2005, end: 20091007
  11. INSULIN [Concomitant]
     Dosage: UNK
     Dates: start: 20100504, end: 20100511

REACTIONS (9)
  - Antineutrophil cytoplasmic antibody positive [Recovering/Resolving]
  - Gamma-glutamyltransferase increased [Recovering/Resolving]
  - Aspartate aminotransferase increased [Recovering/Resolving]
  - Fatigue [Unknown]
  - Alanine aminotransferase increased [Recovering/Resolving]
  - Autoimmune hepatitis [Recovering/Resolving]
  - Liver injury [Recovering/Resolving]
  - Hepatic steatosis [Unknown]
  - Hepatomegaly [Unknown]
